FAERS Safety Report 8803276 (Version 1)
Quarter: 2012Q4

REPORT INFORMATION
  Report Type: 
  Country: US (occurrence: US)
  Receive Date: 20120924
  Receipt Date: 20120924
  Transmission Date: 20130627
  Serious: Yes (Death, Other)
  Sender: FDA-Public Use
  Company Number: PHHY2012US081225

PATIENT
  Age: 75 Year
  Sex: Male

DRUGS (3)
  1. UNSPECIFIED INGREDIENT [Suspect]
     Indication: LIVER TRANSPLANT
  2. PREDNISONE [Concomitant]
     Indication: LIVER TRANSPLANT
  3. TACROLIMUS [Concomitant]
     Indication: LIVER TRANSPLANT

REACTIONS (11)
  - Infection [Fatal]
  - Nervous system disorder [Unknown]
  - Chronic sinusitis [Unknown]
  - Headache [Unknown]
  - Nausea [Unknown]
  - Vomiting [Unknown]
  - Photophobia [Unknown]
  - Post transplant lymphoproliferative disorder [Unknown]
  - Central nervous system lesion [Unknown]
  - Diffuse large B-cell lymphoma [Unknown]
  - Blood lactate dehydrogenase increased [Unknown]
